FAERS Safety Report 6451265-6 (Version None)
Quarter: 2009Q4

REPORT INFORMATION
  Report Type: 
  Country: None (occurrence: None)
  Receive Date: 20091120
  Receipt Date: 20091120
  Transmission Date: 20100525
  Serious: Yes (Hospitalization)
  Sender: FDA-Public Use
  Company Number: None

PATIENT
  Sex: Female
  Weight: 35.3806 kg

DRUGS (5)
  1. CLONAZEPAM [Suspect]
     Dosage: CONAZEPAM 2MG X 1
  2. LEVOTHYROXINE SODIUM [Concomitant]
  3. CALCIUM CARBONATE [Concomitant]
  4. MULTIPLE VITAMIN [Concomitant]
  5. VITAMIN D [Concomitant]

REACTIONS (3)
  - LETHARGY [None]
  - MEDICATION ERROR [None]
  - MENTAL STATUS CHANGES [None]
